FAERS Safety Report 15247230 (Version 1)
Quarter: 2018Q3

REPORT INFORMATION
  Report Type: Report from Study
  Country: US (occurrence: US)
  Receive Date: 20180807
  Receipt Date: 20180807
  Transmission Date: 20181010
  Serious: Yes (Death)
  Sender: FDA-Public Use
  Company Number: US-UCBSA-2018029806

PATIENT
  Age: 40 Year
  Sex: Female
  Weight: 131 kg

DRUGS (3)
  1. CANNABIS [Concomitant]
     Active Substance: CANNABIS SATIVA SUBSP. INDICA TOP
     Indication: SEIZURE
     Dosage: ONE DROP
     Dates: start: 201805
  2. KEPPRA [Suspect]
     Active Substance: LEVETIRACETAM
     Indication: SEIZURE
     Dosage: 2000 MG, 2X/DAY (BID)
     Route: 048
  3. LACOSAMIDE. [Suspect]
     Active Substance: LACOSAMIDE
     Indication: PARTIAL SEIZURES
     Dosage: 200 MG, 2X/DAY (BID)
     Route: 048
     Dates: start: 20170203, end: 20180629

REACTIONS (3)
  - Overdose [Unknown]
  - Off label use [Unknown]
  - Death [Fatal]

NARRATIVE: CASE EVENT DATE: 20180630
